FAERS Safety Report 8513066-4 (Version None)
Quarter: 2012Q3

REPORT INFORMATION
  Report Type: 
  Country: None (occurrence: None)
  Receive Date: 20120716
  Receipt Date: 20120711
  Transmission Date: 20120928
  Serious: Yes (Hospitalization, Other)
  Sender: FDA-Public Use
  Company Number: DE-ABBOTT-12P-062-0946651-00

PATIENT
  Age: 61 Year
  Sex: Male
  Weight: 91 kg

DRUGS (1)
  1. HUMIRA [Suspect]
     Indication: PROSTATIC SPECIFIC ANTIGEN
     Route: 058
     Dates: start: 20111201, end: 20120401

REACTIONS (8)
  - TEMPORAL ARTERITIS [None]
  - BASILAR ARTERY STENOSIS [None]
  - HEADACHE [None]
  - VISUAL ACUITY REDUCED [None]
  - HYPERTHYROIDISM [None]
  - CEREBRAL ARTERY STENOSIS [None]
  - PHOTOSENSITIVITY REACTION [None]
  - MACROANGIOPATHY [None]
